FAERS Safety Report 8951014 (Version 1)
Quarter: 2012Q4

REPORT INFORMATION
  Report Type: 
  Country: MX (occurrence: MX)
  Receive Date: 20121207
  Receipt Date: 20121207
  Transmission Date: 20130627
  Serious: Yes (Other)
  Sender: FDA-Public Use
  Company Number: PHHY2012MX112332

PATIENT
  Age: 70 Year
  Sex: Female

DRUGS (1)
  1. DIOVAN [Suspect]
     Indication: HYPERTENSION
     Dosage: 1 DF(80 mg), daily
     Route: 048
     Dates: start: 20120305

REACTIONS (2)
  - Diabetes mellitus [Not Recovered/Not Resolved]
  - Spinal pain [Not Recovered/Not Resolved]
